FAERS Safety Report 6725642-X (Version None)
Quarter: 2010Q2

REPORT INFORMATION
  Report Type: 
  Country: None (occurrence: None)
  Receive Date: 20100514
  Receipt Date: 20100503
  Transmission Date: 20101027
  Serious: Yes (Other)
  Sender: FDA-Public Use
  Company Number: LB-SANOFI-AVENTIS-2010SA025471

PATIENT
  Age: 58 Year
  Sex: Female

DRUGS (9)
  1. DOCETAXEL [Suspect]
     Indication: BREAST CANCER
  2. TRASTUZUMAB [Suspect]
     Indication: BREAST CANCER
  3. TRASTUZUMAB [Suspect]
  4. TRASTUZUMAB [Suspect]
  5. FLUOROURACIL [Suspect]
     Indication: BREAST CANCER
  6. DOXORUBICIN HCL [Suspect]
     Indication: BREAST CANCER
  7. CYCLOPHOSPHAMIDE [Suspect]
     Indication: BREAST CANCER
  8. VINORELBINE [Suspect]
     Indication: BREAST CANCER
  9. VINORELBINE [Suspect]

REACTIONS (1)
  - PHRENIC NERVE PARALYSIS [None]
